FAERS Safety Report 8282529-1 (Version None)
Quarter: 2012Q2

REPORT INFORMATION
  Report Type: 
  Country: None (occurrence: None)
  Receive Date: 20120410
  Receipt Date: 20120321
  Transmission Date: 20120825
  Serious: Yes (Other)
  Sender: FDA-Public Use
  Company Number: 001169013A

PATIENT
  Age: 31 Year
  Sex: Female

DRUGS (1)
  1. PROACTIV 90DAY KIT [Suspect]
     Indication: ACNE
     Dosage: ONE USE DERMAL
     Dates: start: 20120220

REACTIONS (2)
  - APPLICATION SITE PAIN [None]
  - APPLICATION SITE URTICARIA [None]
